FAERS Safety Report 11508444 (Version 1)
Quarter: 2015Q3

REPORT INFORMATION
  Report Type: Spontaneous
  Country: US (occurrence: US)
  Receive Date: 20150903
  Receipt Date: 20150903
  Transmission Date: 20151125
  Serious: No
  Sender: FDA-Public Use
  Company Number: US-ELI_LILLY_AND_COMPANY-US200909005410

PATIENT
  Sex: Male

DRUGS (4)
  1. HUMALOG [Suspect]
     Active Substance: INSULIN LISPRO
     Dosage: 9 U, UNKNOWN
     Dates: start: 200906, end: 20090617
  2. GLYBURIDE. [Concomitant]
     Active Substance: GLYBURIDE
     Indication: TYPE 2 DIABETES MELLITUS
     Dosage: UNK, 2/D
     Dates: start: 2006
  3. ACTOS [Concomitant]
     Active Substance: PIOGLITAZONE HYDROCHLORIDE
     Dosage: UNK, DAILY (1/D)
     Dates: start: 20060915
  4. HUMALOG [Suspect]
     Active Substance: INSULIN LISPRO
     Dosage: 6 U, UNKNOWN

REACTIONS (3)
  - Drug prescribing error [Unknown]
  - Drug ineffective [Unknown]
  - Blood glucose increased [Unknown]

NARRATIVE: CASE EVENT DATE: 200906
